FAERS Safety Report 25565076 (Version 1)
Quarter: 2025Q3

REPORT INFORMATION
  Report Type: Spontaneous
  Country: IN (occurrence: IN)
  Receive Date: 20250716
  Receipt Date: 20250716
  Transmission Date: 20251021
  Serious: Yes (Other)
  Sender: RANBAXY
  Company Number: IN-SUN PHARMACEUTICAL INDUSTRIES LTD-2025R1-516651

PATIENT
  Sex: Male

DRUGS (8)
  1. DOXORUBICIN [Suspect]
     Active Substance: DOXORUBICIN
     Indication: Chemotherapy
     Route: 065
  2. METHOTREXATE [Suspect]
     Active Substance: METHOTREXATE
     Indication: Chemotherapy
     Route: 065
  3. VINCRISTINE [Suspect]
     Active Substance: VINCRISTINE
     Indication: Chemotherapy
     Route: 065
  4. DAUNORUBICIN [Suspect]
     Active Substance: DAUNORUBICIN
     Indication: Chemotherapy
     Route: 065
  5. ETOPOSIDE [Suspect]
     Active Substance: ETOPOSIDE
     Indication: Chemotherapy
     Route: 065
  6. IFOSFAMIDE [Suspect]
     Active Substance: IFOSFAMIDE
     Indication: Chemotherapy
     Route: 065
  7. ASPARAGINASE [Suspect]
     Active Substance: ASPARAGINASE
     Indication: Chemotherapy
     Route: 065
  8. MERCAPTOPURINE [Suspect]
     Active Substance: MERCAPTOPURINE
     Indication: Chemotherapy
     Route: 065

REACTIONS (3)
  - Acute myeloid leukaemia [Unknown]
  - BRAF V600E mutation positive [Unknown]
  - Myeloproliferative neoplasm [Unknown]
